FAERS Safety Report 14052623 (Version 2)
Quarter: 2017Q4

REPORT INFORMATION
  Report Type: Report from Study
  Country: MX (occurrence: MX)
  Receive Date: 20171006
  Receipt Date: 20171018
  Transmission Date: 20180321
  Serious: Yes (Other)
  Sender: FDA-Public Use
  Company Number: MX-SUN PHARMACEUTICAL INDUSTRIES LTD-2017RR-151469

PATIENT

DRUGS (1)
  1. IBUPROFEN. [Suspect]
     Active Substance: IBUPROFEN
     Indication: PATENT DUCTUS ARTERIOSUS
     Dosage: INITIAL DOSAGE WAS10 MG/KG/DAY, AND 2 ADDITIONAL DOSES OF 5 MG/KG/DAY
     Route: 042

REACTIONS (1)
  - Acute kidney injury [Unknown]
